FAERS Safety Report 21397074 (Version 1)
Quarter: 2022Q3

REPORT INFORMATION
  Report Type: Spontaneous
  Country: PT (occurrence: PT)
  Receive Date: 20220930
  Receipt Date: 20220930
  Transmission Date: 20221027
  Serious: Yes (Other)
  Sender: FDA-Public Use
  Company Number: PT-ORGANON-O2209PRT002299

PATIENT
  Age: 35 Year
  Sex: Female

DRUGS (5)
  1. ETONOGESTREL [Suspect]
     Active Substance: ETONOGESTREL
     Dosage: 1 IMPLANT UPPER LEFT MEMBER
     Route: 058
     Dates: start: 20200624
  2. ETONOGESTREL [Concomitant]
     Active Substance: ETONOGESTREL
     Dosage: 1 IMPLANT UPPER LEFT MEMBER
     Route: 058
     Dates: end: 20200624
  3. INDAPAMIDE [Concomitant]
     Active Substance: INDAPAMIDE
     Dosage: UNK
  4. AMLODIPINE [Concomitant]
     Active Substance: AMLODIPINE BESYLATE
     Dosage: UNK
  5. FLUOXETINE [Concomitant]
     Active Substance: FLUOXETINE HYDROCHLORIDE
     Dosage: UNK

REACTIONS (5)
  - Device related infection [Unknown]
  - Implant site swelling [Unknown]
  - Implant site erythema [Unknown]
  - Implant site oedema [Unknown]
  - Implant site pain [Unknown]

NARRATIVE: CASE EVENT DATE: 20200101
